FAERS Safety Report 4462783-4 (Version None)
Quarter: 2004Q3

REPORT INFORMATION
  Report Type: 
  Country: None (occurrence: None)
  Receive Date: 20040927
  Receipt Date: 20040915
  Transmission Date: 20050211
  Serious: Yes (Other)
  Sender: FDA-Public Use
  Company Number: 2004059000

PATIENT
  Age: 61 Year
  Sex: Female

DRUGS (6)
  1. RELPAX [Suspect]
     Indication: MIGRAINE
  2. SUMATRIPTAN SUCCINATE [Suspect]
     Indication: MIGRAINE
     Dosage: (100 MG)
  3. NARATRIPTAN HYDROCHLORIDE (NARATRIPTAN HYDROCHLORIDE) [Suspect]
     Indication: MIGRAINE
  4. METOPROLOL TARTRATE [Concomitant]
  5. LANSOPRAZOLE [Concomitant]
  6. SERTRALINE HCL [Concomitant]

REACTIONS (2)
  - CORNEAL EPITHELIUM DEFECT [None]
  - EYE INJURY [None]
